FAERS Safety Report 12705896 (Version 1)
Quarter: 2016Q3

REPORT INFORMATION
  Report Type: Spontaneous
  Country: US (occurrence: None)
  Receive Date: 20160831
  Receipt Date: 20160831
  Transmission Date: 20161109
  Serious: Yes (Hospitalization, Other)
  Sender: FDA-Public Use
  Company Number: None

PATIENT
  Age: 74 Year
  Sex: Male

DRUGS (5)
  1. HYCAMTIN [Suspect]
     Active Substance: TOPOTECAN HYDROCHLORIDE
     Indication: NEOPLASM MALIGNANT
     Dosage: QD FOR 5 DAYS
     Route: 048
     Dates: start: 20160729, end: 201608
  2. ECOTRIN [Concomitant]
     Active Substance: ASPIRIN
  3. NIACIN. [Concomitant]
     Active Substance: NIACIN
  4. ADVAIR DISKUS 250/50 [Concomitant]
  5. METORPOROLOL [Concomitant]

REACTIONS (2)
  - Full blood count decreased [None]
  - Diarrhoea [None]

NARRATIVE: CASE EVENT DATE: 201608
